FAERS Safety Report 10587110 (Version 13)
Quarter: 2017Q1

REPORT INFORMATION
  Report Type: Report from Study
  Country: US (occurrence: US)
  Receive Date: 20141117
  Receipt Date: 20170324
  Transmission Date: 20170428
  Serious: Yes (Hospitalization, Other)
  Sender: FDA-Public Use
  Company Number: US-SA-2014SA156084

PATIENT
  Age: 54 Year
  Sex: Male

DRUGS (4)
  1. FABRAZYME [Suspect]
     Active Substance: AGALSIDASE BETA
     Indication: FABRY^S DISEASE
     Route: 041
     Dates: start: 20130926
  2. DILANTIN [Suspect]
     Active Substance: PHENYTOIN
     Route: 065
  3. FABRAZYME [Suspect]
     Active Substance: AGALSIDASE BETA
     Indication: FABRY^S DISEASE
     Route: 041
     Dates: start: 201508
  4. FABRAZYME [Suspect]
     Active Substance: AGALSIDASE BETA
     Indication: FABRY^S DISEASE
     Route: 041

REACTIONS (18)
  - Brain stem syndrome [Unknown]
  - Jaw fracture [Not Recovered/Not Resolved]
  - Memory impairment [Unknown]
  - Pain [Unknown]
  - Pain in extremity [Unknown]
  - Mental status changes [Unknown]
  - Vomiting [Unknown]
  - Cardiac disorder [Recovered/Resolved]
  - Upper limb fracture [Unknown]
  - Infection [Not Recovered/Not Resolved]
  - Weight decreased [Unknown]
  - Abasia [Unknown]
  - Toxicity to various agents [Not Recovered/Not Resolved]
  - Fall [Unknown]
  - Trigeminal neuralgia [Not Recovered/Not Resolved]
  - Urinary incontinence [Unknown]
  - Neuralgia [Unknown]
  - Dehydration [Unknown]

NARRATIVE: CASE EVENT DATE: 201505
